FAERS Safety Report 18218144 (Version 1)
Quarter: 2020Q3

REPORT INFORMATION
  Report Type: Spontaneous
  Country: FR (occurrence: FR)
  Receive Date: 20200901
  Receipt Date: 20200901
  Transmission Date: 20201103
  Serious: Yes (Other)
  Sender: FDA-Public Use
  Company Number: FR-MYLANLABS-2020M1074775

PATIENT
  Age: 60 Year
  Sex: Male
  Weight: 70.9 kg

DRUGS (6)
  1. CILASTATIN/IMIPENEM [Suspect]
     Active Substance: CILASTATIN SODIUM\IMIPENEM
     Indication: LUNG DISORDER
     Dosage: 1500 MILLIGRAM, QD
     Route: 042
     Dates: start: 20171202, end: 20171204
  2. SPIRAMYCINE SANDOZ [Suspect]
     Active Substance: SPIRAMYCIN
     Indication: LUNG DISORDER
     Dosage: 1 DOSAGE FORM, QD
     Route: 042
     Dates: start: 20171202, end: 20171203
  3. BACTRIM [Suspect]
     Active Substance: SULFAMETHOXAZOLE\TRIMETHOPRIM
     Indication: PNEUMOCYSTIS JIROVECII PNEUMONIA
     Dosage: 8 GRAM, QD
     Route: 042
     Dates: start: 20171204, end: 20171207
  4. CASPOFUNGINE OHRE PHARMA [Suspect]
     Active Substance: CASPOFUNGIN ACETATE
     Indication: LUNG DISORDER
     Dosage: 50 MILLIGRAM, QD
     Route: 042
     Dates: start: 20171202, end: 20171208
  5. PIPERACILLIN AND TAZOBACTAM [Suspect]
     Active Substance: PIPERACILLIN SODIUM\TAZOBACTAM SODIUM
     Indication: LUNG DISORDER
     Dosage: 12 GRAM, QD
     Route: 042
     Dates: start: 20171204
  6. VANCOMYCIN [Suspect]
     Active Substance: VANCOMYCIN
     Indication: LUNG DISORDER
     Dosage: 2 GRAM, QD
     Route: 042
     Dates: start: 20171202, end: 20171204

REACTIONS (1)
  - Pancytopenia [Recovered/Resolved]

NARRATIVE: CASE EVENT DATE: 20171207
